FAERS Safety Report 16713010 (Version 1)
Quarter: 2019Q3

REPORT INFORMATION
  Report Type: Spontaneous
  Country: IT (occurrence: IT)
  Receive Date: 20190817
  Receipt Date: 20190817
  Transmission Date: 20191004
  Serious: Yes (Life-Threatening, Other)
  Sender: FDA-Public Use
  Company Number: IT-ACCORD-151163

PATIENT
  Age: 71 Year
  Sex: Female

DRUGS (1)
  1. DECITABINE. [Suspect]
     Active Substance: DECITABINE
     Indication: CHLOROMA
     Dosage: 20 MG/MQ?FOR FIVE DAYS (EVERY 28 DAYS)
     Route: 042
     Dates: start: 201610

REACTIONS (4)
  - Neutropenia [Unknown]
  - Pneumonia [Recovered/Resolved]
  - Acute respiratory failure [Unknown]
  - Anaemia [Unknown]
